FAERS Safety Report 5597184-9 (Version None)
Quarter: 2008Q1

REPORT INFORMATION
  Report Type: 
  Country: None (occurrence: None)
  Receive Date: 20080121
  Receipt Date: 20080108
  Transmission Date: 20080703
  Serious: Yes (Other)
  Sender: FDA-Public Use
  Company Number: US-JNJFOC-20080102332

PATIENT
  Sex: Male
  Weight: 56.7 kg

DRUGS (2)
  1. EXTRA STRENGTH TYLENOL [Suspect]
     Dosage: EXCEEDING THE DOSE A LITTLE
  2. EXTRA STRENGTH TYLENOL [Suspect]
     Indication: INSOMNIA
     Dosage: 1-2 DOSES AT HOUR OF SLEEP

REACTIONS (4)
  - DRUG INEFFECTIVE [None]
  - INCORRECT DOSE ADMINISTERED [None]
  - INSOMNIA [None]
  - RESTLESS LEGS SYNDROME [None]
